FAERS Safety Report 5120317-5 (Version None)
Quarter: 2006Q4

REPORT INFORMATION
  Report Type: 
  Country: None (occurrence: None)
  Receive Date: 20061004
  Receipt Date: 20060919
  Transmission Date: 20070319
  Serious: Yes (Other)
  Sender: FDA-Public Use
  Company Number: PHBS2006TR14462

PATIENT
  Age: 25 Year
  Sex: Male

DRUGS (1)
  1. CO-DIOVAN [Suspect]
     Dosage: 28 TABLETS, ONCE/SINGLE
     Route: 048
     Dates: start: 20060919, end: 20060919

REACTIONS (2)
  - INTENTIONAL OVERDOSE [None]
  - SUICIDE ATTEMPT [None]
